FAERS Safety Report 20045119 (Version 2)
Quarter: 2024Q4

REPORT INFORMATION
  Report Type: Report from Study
  Country: US (occurrence: US)
  Receive Date: 20211108
  Receipt Date: 20241220
  Transmission Date: 20250114
  Serious: Yes (Death, Other)
  Sender: KYOWA
  Company Number: US-KYOWAKIRIN-2021BKK018642

PATIENT

DRUGS (3)
  1. NOURIANZ [Suspect]
     Active Substance: ISTRADEFYLLINE
     Indication: Parkinson^s disease
     Dosage: 20 MG, QD
     Route: 048
     Dates: start: 202109
  2. NOURIANZ [Suspect]
     Active Substance: ISTRADEFYLLINE
     Dosage: 20 MG, QD
     Route: 048
     Dates: start: 20200504
  3. NUPLAZID [Concomitant]
     Active Substance: PIMAVANSERIN TARTRATE
     Indication: Product used for unknown indication
     Dosage: UNK
     Route: 065

REACTIONS (3)
  - Death [Fatal]
  - Blood pressure increased [Unknown]
  - Emergency care [Unknown]

NARRATIVE: CASE EVENT DATE: 20241208
